FAERS Safety Report 4339260-4 (Version None)
Quarter: 2004Q2

REPORT INFORMATION
  Report Type: 
  Country: None (occurrence: None)
  Receive Date: 20040412
  Receipt Date: 20040326
  Transmission Date: 20050107
  Serious: Yes (Life-Threatening, Hospitalization)
  Sender: FDA-Public Use
  Company Number: 2004-BP-02211BP

PATIENT
  Age: 73 Year
  Sex: Male

DRUGS (8)
  1. MICARDIS [Suspect]
     Indication: CARDIOVASCULAR DISORDER
     Dosage: PO
     Route: 048
     Dates: start: 20030423
  2. MICARDIS [Suspect]
     Indication: MYOCARDIAL INFARCTION
     Dosage: PO
     Route: 048
     Dates: start: 20030423
  3. MICARDIS [Suspect]
     Indication: PROPHYLAXIS
     Dosage: PO
     Route: 048
     Dates: start: 20030423
  4. RAMIPRIL [Suspect]
     Indication: CEREBROVASCULAR ACCIDENT
     Dosage: PO
     Route: 048
     Dates: start: 20030423
  5. RAMIPRIL [Suspect]
     Indication: MYOCARDIAL INFARCTION
     Dosage: PO
     Route: 048
     Dates: start: 20030423
  6. RAMIPRIL [Suspect]
     Indication: PROPHYLAXIS
     Dosage: PO
     Route: 048
     Dates: start: 20030423
  7. ATORVASTATIN (ATORVASTATIN) [Concomitant]
  8. ASPIRIN [Concomitant]

REACTIONS (4)
  - CONFUSIONAL STATE [None]
  - HAEMODIALYSIS [None]
  - RENAL FAILURE ACUTE [None]
  - URINARY TRACT INFECTION [None]
